FAERS Safety Report 12616902 (Version 3)
Quarter: 2016Q3

REPORT INFORMATION
  Report Type: Report from Study
  Country: IT (occurrence: IT)
  Receive Date: 20160802
  Receipt Date: 20160914
  Transmission Date: 20161109
  Serious: Yes (Hospitalization, Other)
  Sender: FDA-Public Use
  Company Number: PHHY2016IT104816

PATIENT
  Age: 88 Year
  Sex: Female

DRUGS (1)
  1. TRAMETINIB [Suspect]
     Active Substance: TRAMETINIB
     Indication: MALIGNANT MELANOMA
     Dosage: 2 MG, QD
     Route: 048
     Dates: start: 20160628, end: 20160723

REACTIONS (12)
  - Polymerase chain reaction positive [Unknown]
  - Hepatic failure [Recovering/Resolving]
  - Muscular weakness [Recovered/Resolved with Sequelae]
  - Blood creatinine increased [Unknown]
  - Sepsis [Recovered/Resolved with Sequelae]
  - Alanine aminotransferase increased [Unknown]
  - Pyrexia [Recovered/Resolved with Sequelae]
  - Blood creatine phosphokinase increased [Unknown]
  - Renal failure [Recovering/Resolving]
  - Neutrophil count increased [Unknown]
  - Aspartate aminotransferase increased [Unknown]
  - White blood cell count increased [Unknown]

NARRATIVE: CASE EVENT DATE: 20160723
